FAERS Safety Report 18635692 (Version 1)
Quarter: 2020Q4

REPORT INFORMATION
  Report Type: Report from Study
  Country: US (occurrence: US)
  Receive Date: 20201218
  Receipt Date: 20201218
  Transmission Date: 20210114
  Serious: Yes (Hospitalization)
  Sender: FDA-Public Use
  Company Number: US-TAKEDA-US201923736

PATIENT
  Age: 77 Year
  Sex: Female
  Weight: 56 kg

DRUGS (35)
  1. TEDUGLUTIDE [Suspect]
     Active Substance: TEDUGLUTIDE
     Dosage: 5 MILLIGRAM, QD
     Route: 065
     Dates: start: 20180514, end: 20180718
  2. TEDUGLUTIDE [Suspect]
     Active Substance: TEDUGLUTIDE
     Dosage: 1.25 MILLIGRAM, 1X/DAY:QD
     Route: 065
     Dates: start: 20180718, end: 20180730
  3. TEDUGLUTIDE [Suspect]
     Active Substance: TEDUGLUTIDE
     Dosage: 2.8 MILLIGRAM (0.05 MG/KG), 1X/DAY:QD, 7 DOSES/WEEK
     Route: 065
     Dates: start: 20180730
  4. TEDUGLUTIDE [Suspect]
     Active Substance: TEDUGLUTIDE
     Dosage: 2.8 MILLIGRAM (0.05 MG/KG), 1X/DAY:QD, 7 DOSES/WEEK
     Route: 065
     Dates: start: 20180730
  5. TEDUGLUTIDE [Suspect]
     Active Substance: TEDUGLUTIDE
     Dosage: 2.8 MILLIGRAM (0.05 MG/KG), 1X/DAY:QD, 7 DOSES/WEEK
     Route: 065
     Dates: start: 20180730
  6. TEDUGLUTIDE [Suspect]
     Active Substance: TEDUGLUTIDE
     Dosage: 1.25 MILLIGRAM, 1X/DAY:QD
     Route: 065
     Dates: start: 20180718, end: 20180730
  7. THIAMIN [THIAMINE] [Concomitant]
     Active Substance: THIAMINE
     Indication: HYPOVITAMINOSIS
     Dosage: 50 MILLIGRAM, QD
     Route: 048
     Dates: start: 20141203, end: 20170819
  8. FERROUS SULFATE. [Concomitant]
     Active Substance: FERROUS SULFATE
     Indication: ANAEMIA
     Dosage: 325 MILLIGRAM, QD
     Route: 048
     Dates: start: 20170819
  9. TEDUGLUTIDE [Suspect]
     Active Substance: TEDUGLUTIDE
     Dosage: 1.25 MILLIGRAM, 1X/DAY:QD
     Route: 065
     Dates: start: 20180718, end: 20180730
  10. TEDUGLUTIDE [Suspect]
     Active Substance: TEDUGLUTIDE
     Dosage: 1.25 MILLIGRAM, 1X/DAY:QD
     Route: 065
     Dates: start: 20180718, end: 20180730
  11. TEDUGLUTIDE [Suspect]
     Active Substance: TEDUGLUTIDE
     Dosage: 2.8 MILLIGRAM (0.05 MG/KG), 1X/DAY:QD, 7 DOSES/WEEK
     Route: 065
     Dates: start: 20180730
  12. TEDUGLUTIDE [Suspect]
     Active Substance: TEDUGLUTIDE
     Dosage: 5 MILLIGRAM, QD
     Route: 065
     Dates: start: 20171004, end: 20180117
  13. TEDUGLUTIDE [Suspect]
     Active Substance: TEDUGLUTIDE
     Dosage: 2.8 MILLIGRAM (0.05 MG/KG), 1X/DAY:QD
     Route: 065
     Dates: start: 20180117, end: 20180514
  14. LOPERAMIDE [Concomitant]
     Active Substance: LOPERAMIDE
     Indication: SHORT-BOWEL SYNDROME
     Dosage: 2 DOSAGE FORM, Q6HR
     Route: 048
     Dates: start: 20170819
  15. PYRIDOXINE HCL [Concomitant]
     Active Substance: PYRIDOXINE HYDROCHLORIDE
     Indication: HYPOVITAMINOSIS
     Dosage: 50 MILLIGRAM, TID
     Route: 048
     Dates: start: 20170819
  16. TEDUGLUTIDE [Suspect]
     Active Substance: TEDUGLUTIDE
     Indication: SHORT-BOWEL SYNDROME
     Dosage: 2.8 MILLIGRAM (0.05 MG/KG), 1X/DAY:QD, 7 DOSES/WEEK
     Route: 065
     Dates: start: 20160518, end: 20170601
  17. TEDUGLUTIDE [Suspect]
     Active Substance: TEDUGLUTIDE
     Indication: SHORT-BOWEL SYNDROME
     Dosage: 2.8 MILLIGRAM (0.05 MG/KG), 1X/DAY:QD, 7 DOSES/WEEK
     Route: 065
     Dates: start: 20160518, end: 20170601
  18. TEDUGLUTIDE [Suspect]
     Active Substance: TEDUGLUTIDE
     Dosage: 5 MILLIGRAM, QD
     Route: 065
     Dates: start: 20170606, end: 20170705
  19. TEDUGLUTIDE [Suspect]
     Active Substance: TEDUGLUTIDE
     Dosage: 5 MILLIGRAM, QD
     Route: 065
     Dates: start: 20170606, end: 20170705
  20. TEDUGLUTIDE [Suspect]
     Active Substance: TEDUGLUTIDE
     Dosage: 5 MILLIGRAM, QD
     Route: 065
     Dates: start: 20170606, end: 20170705
  21. TEDUGLUTIDE [Suspect]
     Active Substance: TEDUGLUTIDE
     Dosage: 5 MILLIGRAM, QD
     Route: 065
     Dates: start: 20171004, end: 20180117
  22. TEDUGLUTIDE [Suspect]
     Active Substance: TEDUGLUTIDE
     Dosage: 5 MILLIGRAM, QD
     Route: 065
     Dates: start: 20171004, end: 20180117
  23. TEDUGLUTIDE [Suspect]
     Active Substance: TEDUGLUTIDE
     Dosage: 2.8 MILLIGRAM (0.05 MG/KG), 1X/DAY:QD
     Route: 065
     Dates: start: 20180117, end: 20180514
  24. TEDUGLUTIDE [Suspect]
     Active Substance: TEDUGLUTIDE
     Dosage: 5 MILLIGRAM, QD
     Route: 065
     Dates: start: 20180514, end: 20180718
  25. TEDUGLUTIDE [Suspect]
     Active Substance: TEDUGLUTIDE
     Dosage: 5 MILLIGRAM, QD
     Route: 065
     Dates: start: 20171004, end: 20180117
  26. TEDUGLUTIDE [Suspect]
     Active Substance: TEDUGLUTIDE
     Dosage: 2.8 MILLIGRAM (0.05 MG/KG), 1X/DAY:QD
     Route: 065
     Dates: start: 20180117, end: 20180514
  27. WARFARIN [Concomitant]
     Active Substance: WARFARIN
     Indication: SYNCOPE
  28. TEDUGLUTIDE [Suspect]
     Active Substance: TEDUGLUTIDE
     Indication: SHORT-BOWEL SYNDROME
     Dosage: 2.8 MILLIGRAM (0.05 MG/KG), 1X/DAY:QD, 7 DOSES/WEEK
     Route: 065
     Dates: start: 20160518, end: 20170601
  29. TEDUGLUTIDE [Suspect]
     Active Substance: TEDUGLUTIDE
     Indication: SHORT-BOWEL SYNDROME
     Dosage: 2.8 MILLIGRAM (0.05 MG/KG), 1X/DAY:QD, 7 DOSES/WEEK
     Route: 065
     Dates: start: 20160518, end: 20170601
  30. TEDUGLUTIDE [Suspect]
     Active Substance: TEDUGLUTIDE
     Dosage: 5 MILLIGRAM, QD
     Route: 065
     Dates: start: 20170606, end: 20170705
  31. TEDUGLUTIDE [Suspect]
     Active Substance: TEDUGLUTIDE
     Dosage: 2.8 MILLIGRAM (0.05 MG/KG), 1X/DAY:QD
     Route: 065
     Dates: start: 20180117, end: 20180514
  32. TEDUGLUTIDE [Suspect]
     Active Substance: TEDUGLUTIDE
     Dosage: 5 MILLIGRAM, QD
     Route: 065
     Dates: start: 20180514, end: 20180718
  33. TEDUGLUTIDE [Suspect]
     Active Substance: TEDUGLUTIDE
     Dosage: 5 MILLIGRAM, QD
     Route: 065
     Dates: start: 20180514, end: 20180718
  34. WARFARIN [Concomitant]
     Active Substance: WARFARIN
     Indication: CIRCULATORY COLLAPSE
  35. VITAMIN B6 [Concomitant]
     Active Substance: PYRIDOXINE HYDROCHLORIDE
     Indication: SHORT-BOWEL SYNDROME

REACTIONS (3)
  - Cellulitis [Recovered/Resolved]
  - Colitis ischaemic [Recovered/Resolved]
  - Tooth abscess [Recovered/Resolved]

NARRATIVE: CASE EVENT DATE: 20180702
